FAERS Safety Report 9136090 (Version 2)
Quarter: 2013Q1

REPORT INFORMATION
  Report Type: Spontaneous
  Country: DE (occurrence: None)
  Receive Date: 20130117
  Receipt Date: 20130222
  Transmission Date: 20140127
  Serious: Yes (Death)
  Sender: FDA-Public Use
  Company Number: 2013034453

PATIENT
  Age: 74 Year
  Sex: Male

DRUGS (1)
  1. PRIVIGEN (IMMUNE GLOBULIN INTRAVENOUS (HUMAN) 10% LIQUID) [Suspect]
     Indication: PLASMA CELL MYELOMA
     Dosage: 09:30 TO 12:00?10 G QD
     Route: 042
     Dates: start: 20110512, end: 20110512

REACTIONS (1)
  - Sepsis [None]
